FAERS Safety Report 22308052 (Version 1)
Quarter: 2023Q2

REPORT INFORMATION
  Report Type: Spontaneous
  Country: US (occurrence: None)
  Receive Date: 20230511
  Receipt Date: 20230511
  Transmission Date: 20230721
  Serious: No
  Sender: FDA-Public Use
  Company Number: US-ROCHE-3185530

PATIENT
  Sex: Male

DRUGS (1)
  1. OCREVUS [Suspect]
     Active Substance: OCRELIZUMAB
     Indication: Primary progressive multiple sclerosis
     Route: 042
     Dates: start: 20200401

REACTIONS (5)
  - Muscle twitching [Unknown]
  - Excessive eye blinking [Unknown]
  - Hypoacusis [Unknown]
  - Peroneal nerve palsy [Unknown]
  - Fatigue [Unknown]
